FAERS Safety Report 12087191 (Version 1)
Quarter: 2016Q1

REPORT INFORMATION
  Report Type: Spontaneous
  Country: US (occurrence: US)
  Receive Date: 20160217
  Receipt Date: 20160217
  Transmission Date: 20160526
  Serious: No
  Sender: FDA-Public Use
  Company Number: US-ALLERGAN-1523577US

PATIENT
  Age: 65 Year
  Sex: Female
  Weight: 73.92 kg

DRUGS (3)
  1. RESTASIS [Suspect]
     Active Substance: CYCLOSPORINE
     Indication: EYE PAIN
  2. RESTASIS [Suspect]
     Active Substance: CYCLOSPORINE
     Indication: ASTHENOPIA
  3. RESTASIS [Suspect]
     Active Substance: CYCLOSPORINE
     Indication: EYE IRRITATION
     Dosage: 1 GTT, Q12H
     Route: 047
     Dates: start: 20151013, end: 20151014

REACTIONS (5)
  - Lacrimation increased [Recovered/Resolved]
  - Eyelid ptosis [Recovered/Resolved]
  - Off label use [Unknown]
  - Ocular hyperaemia [Recovered/Resolved]
  - Eye swelling [Recovered/Resolved]

NARRATIVE: CASE EVENT DATE: 20151013
